FAERS Safety Report 7263040-3 (Version None)
Quarter: 2011Q1

REPORT INFORMATION
  Report Type: 
  Country: None (occurrence: None)
  Receive Date: 20110130
  Receipt Date: 20100920
  Transmission Date: 20110831
  Serious: Yes (Other)
  Sender: FDA-Public Use
  Company Number: US-ABBOTT-10P-163-0672847-00

PATIENT
  Sex: Male

DRUGS (2)
  1. HUMIRA [Suspect]
     Indication: PSORIASIS
     Dates: start: 20091201, end: 20100401
  2. HUMIRA [Suspect]

REACTIONS (4)
  - DRUG EFFECT DECREASED [None]
  - PSORIASIS [None]
  - PAIN IN EXTREMITY [None]
  - ROTATOR CUFF REPAIR [None]
